FAERS Safety Report 6319467-7 (Version None)
Quarter: 2009Q3

REPORT INFORMATION
  Report Type: 
  Country: None (occurrence: None)
  Receive Date: 20090822
  Receipt Date: 20081007
  Transmission Date: 20100115
  Serious: No
  Sender: FDA-Public Use
  Company Number: US-ABBOTT-08P-163-0474999-00

PATIENT
  Sex: Male

DRUGS (8)
  1. NIASPAN [Suspect]
     Indication: HIGH DENSITY LIPOPROTEIN DECREASED
     Route: 048
     Dates: start: 20080818, end: 20080902
  2. NIASPAN [Suspect]
     Indication: HIGH DENSITY LIPOPROTEIN DECREASED
     Route: 048
     Dates: start: 20080902
  3. VIGRAN [Concomitant]
     Indication: DRUG USE FOR UNKNOWN INDICATION
     Route: 048
  4. FISH OIL [Concomitant]
     Indication: DRUG USE FOR UNKNOWN INDICATION
     Route: 048
  5. ROSUVASTATIN [Concomitant]
     Indication: DRUG USE FOR UNKNOWN INDICATION
     Route: 048
  6. METOPROLOL / TOPROL [Concomitant]
     Indication: BLOOD PRESSURE
     Route: 048
  7. GLIBENCLAMIDE [Concomitant]
     Indication: DRUG USE FOR UNKNOWN INDICATION
     Route: 048
  8. ASPIRIN [Concomitant]
     Indication: PROPHYLAXIS
     Route: 048

REACTIONS (2)
  - FLUSHING [None]
  - OCULAR HYPERAEMIA [None]
